FAERS Safety Report 9196208 (Version 1)
Quarter: 2013Q1

REPORT INFORMATION
  Report Type: Spontaneous
  Country: US (occurrence: None)
  Receive Date: 20120709
  Receipt Date: 20120709
  Transmission Date: 20140127
  Serious: No
  Sender: FDA-Public Use
  Company Number: 2012HGS-003647

PATIENT
  Age: 70 Year
  Sex: Male
  Weight: 99.79 kg

DRUGS (5)
  1. BENLYSTA [Suspect]
     Indication: SYSTEMIC LUPUS ERYTHEMATOSUS
     Dosage: 1 TO 2 MONTHS
     Route: 041
     Dates: start: 20110909, end: 20120406
  2. LISINOPRIL (LISINOPRIL DIHYDRATE)(LISINOPRIL DIHYDRATE) [Concomitant]
  3. ATENOLOL (ATENOLOL)(ATENOLOL) [Concomitant]
  4. COSOPT (COSOPT)(TIMOLOL MALEATE, DORZOLAMIDE HYDROCHLORIDE) [Concomitant]
  5. TAMBOCOR (FLECAINIDE ACETATE)(FLECAINIDE ACETATE) [Concomitant]

REACTIONS (1)
  - Hypogammaglobulinaemia [None]
